FAERS Safety Report 4486622-0 (Version None)
Quarter: 2004Q4

REPORT INFORMATION
  Report Type: 
  Country: None (occurrence: None)
  Receive Date: 20041027
  Receipt Date: 20041018
  Transmission Date: 20050328
  Serious: Yes (Other)
  Sender: FDA-Public Use
  Company Number: PHFR2004GB03896

PATIENT
  Age: 48 Year
  Sex: Male

DRUGS (1)
  1. CLOZARIL [Suspect]
     Indication: SCHIZOPHRENIA
     Dosage: 400MG/DAY
     Dates: start: 19980910

REACTIONS (4)
  - BENIGN PROSTATIC HYPERPLASIA [None]
  - EOSINOPHIL COUNT DECREASED [None]
  - LOOSE STOOLS [None]
  - PLATELET COUNT DECREASED [None]
